FAERS Safety Report 6358153-4 (Version None)
Quarter: 2009Q3

REPORT INFORMATION
  Report Type: 
  Country: None (occurrence: None)
  Receive Date: 20090916
  Receipt Date: 20090910
  Transmission Date: 20100115
  Serious: Yes (Hospitalization)
  Sender: FDA-Public Use
  Company Number: US-MERCK-0907USA05035

PATIENT
  Age: 82 Year
  Sex: Female

DRUGS (21)
  1. FOSAMAX [Suspect]
     Route: 065
  2. LISINOPRIL [Concomitant]
     Route: 048
  3. IMODIUM [Concomitant]
     Route: 065
  4. TYLENOL (CAPLET) [Concomitant]
     Route: 065
  5. ROBITUSSIN [Concomitant]
     Route: 065
  6. SOMA [Concomitant]
     Route: 065
  7. ZOFRAN [Concomitant]
     Route: 065
  8. CLONIDINE [Concomitant]
     Route: 065
  9. DIGOXIN [Concomitant]
     Route: 065
  10. COREG [Concomitant]
     Route: 065
  11. VAGIFEM [Concomitant]
     Route: 065
  12. CHLORHEXIDINE GLUCONATE [Concomitant]
     Route: 065
  13. LATANOPROST [Concomitant]
     Route: 065
  14. LASIX [Concomitant]
     Route: 065
  15. PEPCID [Concomitant]
     Route: 048
  16. COLACE [Concomitant]
     Route: 065
  17. PROTONIX [Concomitant]
     Route: 065
  18. VITAMINS (UNSPECIFIED) [Concomitant]
     Route: 065
  19. NORCO [Concomitant]
     Route: 065
  20. POTASSIUM CHLORIDE [Concomitant]
     Route: 065
  21. ATIVAN [Concomitant]
     Route: 065

REACTIONS (3)
  - ADVERSE EVENT [None]
  - DRUG ADMINISTRATION ERROR [None]
  - URINARY TRACT INFECTION [None]
